FAERS Safety Report 6237533-1 (Version None)
Quarter: 2009Q2

REPORT INFORMATION
  Report Type: 
  Country: None (occurrence: None)
  Receive Date: 20090619
  Receipt Date: 20090615
  Transmission Date: 20091009
  Serious: Yes (Other)
  Sender: FDA-Public Use
  Company Number: DE-B.I. PHARMACEUTICALS,INC./RIDGEFIELD-2009-DE-04305DE

PATIENT
  Sex: Male
  Weight: 60 kg

DRUGS (2)
  1. MOBEC 7,5 MG TABLETTEN [Suspect]
     Dosage: 18ANZ
     Route: 048
  2. PARACETAMOL [Suspect]
     Dosage: 2ANZ
     Route: 048

REACTIONS (3)
  - DRUG ABUSE [None]
  - OVERDOSE [None]
  - SUICIDE ATTEMPT [None]
